FAERS Safety Report 8167423-9 (Version None)
Quarter: 2012Q1

REPORT INFORMATION
  Report Type: 
  Country: None (occurrence: None)
  Receive Date: 20120227
  Receipt Date: 20120213
  Transmission Date: 20120608
  Serious: Yes (Other)
  Sender: FDA-Public Use
  Company Number: GB-SANOFI-AVENTIS-2012SA009269

PATIENT
  Age: 36 Year
  Sex: Male

DRUGS (4)
  1. ACETAMINOPHEN AND CODEINE PHOSPHATE [Concomitant]
     Route: 048
  2. AMLODIPINE [Concomitant]
     Route: 048
  3. AMITRIPTYLINE HCL [Concomitant]
     Route: 048
  4. RILUZOLE [Suspect]
     Route: 048
     Dates: start: 20111209

REACTIONS (4)
  - PAIN IN EXTREMITY [None]
  - PERIPHERAL COLDNESS [None]
  - POOR PERIPHERAL CIRCULATION [None]
  - SKIN DISCOLOURATION [None]
